FAERS Safety Report 24400698 (Version 1)
Quarter: 2024Q4

REPORT INFORMATION
  Report Type: Spontaneous
  Country: US (occurrence: US)
  Receive Date: 20241006
  Receipt Date: 20241006
  Transmission Date: 20250115
  Serious: Yes (Death, Hospitalization, Other)
  Sender: DR REDDYS
  Company Number: US-DRL-USA-LIT/USA/24/0014515

PATIENT
  Age: 69 Year
  Sex: Female

DRUGS (7)
  1. DOXORUBICIN [Suspect]
     Active Substance: DOXORUBICIN
     Indication: Kaposi^s sarcoma
     Dosage: 2 DOSES GIVEN 2 WEEKS APART
  2. TACROLIMUS [Suspect]
     Active Substance: TACROLIMUS
     Indication: Immunosuppressant drug therapy
     Dosage: GOAL LEVEL12-14NG/ML
  3. SIROLIMUS [Suspect]
     Active Substance: SIROLIMUS
     Indication: Immunosuppressant drug therapy
  4. MYCOPHENOLATE MOFETIL [Suspect]
     Active Substance: MYCOPHENOLATE MOFETIL
     Indication: Immunosuppressant drug therapy
  5. PREDNISONE [Suspect]
     Active Substance: PREDNISONE
     Indication: Immunosuppressant drug therapy
  6. HUMAN IMMUNOGLOBULIN G [Suspect]
     Active Substance: HUMAN IMMUNOGLOBULIN G
     Indication: Transplant dysfunction
     Dosage: 1 G/KG IDEAL BODY WEIGHT
  7. RITUXIMAB [Suspect]
     Active Substance: RITUXIMAB
     Indication: Transplant dysfunction
     Dosage: 2 DOSES GIVEN 2 WEEKS APART

REACTIONS (9)
  - Kaposi^s sarcoma [Fatal]
  - Neutropenia [Fatal]
  - Febrile neutropenia [Fatal]
  - Sepsis [Fatal]
  - Condition aggravated [Fatal]
  - Drug ineffective [Fatal]
  - Drug intolerance [Unknown]
  - Myelosuppression [Unknown]
  - Product use in unapproved indication [Unknown]
